FAERS Safety Report 11043760 (Version 1)
Quarter: 2015Q2

REPORT INFORMATION
  Report Type: Report from Study
  Country: US (occurrence: US)
  Receive Date: 20150417
  Receipt Date: 20150417
  Transmission Date: 20150821
  Serious: Yes (Death)
  Sender: FDA-Public Use
  Company Number: US-SA-2015SA048836

PATIENT
  Age: 51 Year
  Sex: Male

DRUGS (1)
  1. RENVELA [Suspect]
     Active Substance: SEVELAMER CARBONATE
     Indication: CHRONIC KIDNEY DISEASE
     Dosage: FREQUENCY: TID CC AND BID SNACK
     Route: 048
     Dates: end: 20140412

REACTIONS (1)
  - Death [Fatal]

NARRATIVE: CASE EVENT DATE: 20140412
